FAERS Safety Report 18773684 (Version 1)
Quarter: 2021Q1

REPORT INFORMATION
  Report Type: Spontaneous
  Country: US (occurrence: US)
  Receive Date: 20210122
  Receipt Date: 20210122
  Transmission Date: 20210419
  Serious: Yes (Hospitalization, Disabling)
  Sender: FDA-Public Use
  Company Number: None

PATIENT
  Age: 35 Year
  Sex: Female
  Weight: 74.25 kg

DRUGS (8)
  1. NARATRIPTAN [Concomitant]
     Active Substance: NARATRIPTAN HYDROCHLORIDE
  2. MELATONIN [Concomitant]
     Active Substance: MELATONIN
  3. AJOVY [Suspect]
     Active Substance: FREMANEZUMAB-VFRM
     Indication: MIGRAINE
     Dosage: ?          QUANTITY:1 INJECTION(S);OTHER FREQUENCY:MONTHLY;OTHER ROUTE:INJECTED INTO FAT?
     Dates: start: 20200815, end: 20201015
  4. NADOLOL. [Concomitant]
     Active Substance: NADOLOL
  5. ZONISAMIDE. [Concomitant]
     Active Substance: ZONISAMIDE
  6. PROMETHAZINE [Concomitant]
     Active Substance: PROMETHAZINE HYDROCHLORIDE
  7. LILLOW [Concomitant]
     Active Substance: ETHINYL ESTRADIOL\LEVONORGESTREL
  8. DICLOFENAC [Concomitant]
     Active Substance: DICLOFENAC

REACTIONS (7)
  - Impaired work ability [None]
  - Nausea [None]
  - Injection site swelling [None]
  - Injection site erythema [None]
  - Weight decreased [None]
  - Injection site pruritus [None]
  - Abdominal pain [None]

NARRATIVE: CASE EVENT DATE: 20201021
